FAERS Safety Report 6241654-7 (Version None)
Quarter: 2009Q2

REPORT INFORMATION
  Report Type: 
  Country: None (occurrence: None)
  Receive Date: 20090623
  Receipt Date: 20061212
  Transmission Date: 20091009
  Serious: Yes (Other)
  Sender: FDA-Public Use
  Company Number: CN-ROCHE-468215

PATIENT
  Age: 33 Year
  Sex: Female

DRUGS (5)
  1. CEFTRIAXONE SODIUM [Suspect]
     Indication: IMPETIGO HERPETIFORMIS
     Route: 041
  2. DEXAMETHASONE [Concomitant]
     Indication: IMPETIGO HERPETIFORMIS
     Route: 041
  3. ASCORBIC ACID [Concomitant]
     Indication: IMPETIGO HERPETIFORMIS
     Route: 041
  4. CALCIUM GLUCONATE [Concomitant]
     Indication: IMPETIGO HERPETIFORMIS
     Dosage: DRUG: GLUCOBIOGEN.
     Route: 041
  5. CALAMINE LOTION [Concomitant]
     Indication: IMPETIGO HERPETIFORMIS

REACTIONS (2)
  - IMPETIGO HERPETIFORMIS [None]
  - PYREXIA [None]
